FAERS Safety Report 5663924-3 (Version None)
Quarter: 2008Q1

REPORT INFORMATION
  Report Type: 
  Country: None (occurrence: None)
  Receive Date: 20080311
  Receipt Date: 20080220
  Transmission Date: 20080703
  Serious: Yes (Death)
  Sender: FDA-Public Use
  Company Number: S07-ESP-06498-01

PATIENT
  Age: 52 Year
  Sex: Male

DRUGS (8)
  1. ESCITALOPRAM [Suspect]
     Indication: DEPRESSED MOOD
     Dosage: 10 MG QD PO
     Route: 048
     Dates: start: 20070826, end: 20070905
  2. MENOREM (MEROPENEM) [Concomitant]
  3. FENITOIN (PHENYTOIN) [Concomitant]
  4. AMBISOME [Concomitant]
  5. VANCOMYCIN [Concomitant]
  6. ENOXAPARIN SODIUM [Concomitant]
  7. LEVOTHYROXINE SODIUM [Concomitant]
  8. CANCIDAS [Concomitant]

REACTIONS (8)
  - CANDIDIASIS [None]
  - DRUG RESISTANCE [None]
  - OPPORTUNISTIC INFECTION [None]
  - PSEUDOMONAS INFECTION [None]
  - SEPTIC SHOCK [None]
  - SKIN NECROSIS [None]
  - SUBARACHNOID HAEMORRHAGE [None]
  - THROMBOCYTOPENIA [None]
